FAERS Safety Report 10611256 (Version 1)
Quarter: 2014Q4

REPORT INFORMATION
  Report Type: Spontaneous
  Country: US (occurrence: US)
  Receive Date: 20141126
  Receipt Date: 20141126
  Transmission Date: 20150529
  Serious: Yes (Hospitalization)
  Sender: FDA-Public Use
  Company Number: US-JNJFOC-20141115886

PATIENT
  Age: 77 Year
  Sex: Male
  Weight: 88 kg

DRUGS (20)
  1. FLORINEF ACETATE [Concomitant]
     Active Substance: FLUDROCORTISONE ACETATE
     Route: 048
  2. TRAVATAN [Concomitant]
     Active Substance: TRAVOPROST
     Indication: BORDERLINE GLAUCOMA
     Route: 047
  3. ALDACTONE [Concomitant]
     Active Substance: SPIRONOLACTONE
     Route: 048
  4. IMBRUVICA [Suspect]
     Active Substance: IBRUTINIB
     Indication: CHRONIC LYMPHOCYTIC LEUKAEMIA
     Route: 048
     Dates: start: 201406, end: 201410
  5. LASIX [Concomitant]
     Active Substance: FUROSEMIDE
     Route: 048
  6. LASIX [Concomitant]
     Active Substance: FUROSEMIDE
     Route: 048
  7. MIRALAX [Concomitant]
     Active Substance: POLYETHYLENE GLYCOL 3350
  8. IMBRUVICA [Suspect]
     Active Substance: IBRUTINIB
     Indication: CHRONIC LYMPHOCYTIC LEUKAEMIA
     Route: 048
     Dates: start: 2014
  9. CEFOCEF (CEFOPERAZONE SODIUM/SULBACTAM SODIUM) [Concomitant]
     Route: 048
  10. CEFOCEF (CEFOPERAZONE SODIUM/SULBACTAM SODIUM) [Concomitant]
     Route: 048
  11. FOLIC ACID. [Concomitant]
     Active Substance: FOLIC ACID
     Route: 048
  12. LASIX [Concomitant]
     Active Substance: FUROSEMIDE
     Route: 048
  13. NEURONTIN [Concomitant]
     Active Substance: GABAPENTIN
     Route: 048
  14. COMPAZINE [Concomitant]
     Active Substance: PROCHLORPERAZINE MALEATE
     Route: 048
  15. PRILOSEC [Concomitant]
     Active Substance: OMEPRAZOLE MAGNESIUM
     Indication: PROPHYLAXIS
     Route: 048
  16. CELEBREX [Concomitant]
     Active Substance: CELECOXIB
  17. FERROUS SULFATE [Concomitant]
     Active Substance: FERROUS SULFATE\FERROUS SULFATE, DRIED
     Route: 048
  18. LOPRESSOR [Concomitant]
     Active Substance: METOPROLOL TARTRATE
     Route: 048
  19. ALPHAGAN P [Concomitant]
     Active Substance: BRIMONIDINE TARTRATE
     Indication: BORDERLINE GLAUCOMA
     Route: 047
  20. LIPITOR [Concomitant]
     Active Substance: ATORVASTATIN CALCIUM
     Route: 048
     Dates: start: 20141022

REACTIONS (5)
  - Encephalopathy [Unknown]
  - Weight increased [Recovered/Resolved]
  - Lacunar infarction [Recovered/Resolved with Sequelae]
  - Urinary tract infection [Recovered/Resolved]
  - Muscle disorder [Unknown]

NARRATIVE: CASE EVENT DATE: 2014
